FAERS Safety Report 10174820 (Version 2)
Quarter: 2014Q2

REPORT INFORMATION
  Report Type: Spontaneous
  Country: US (occurrence: US)
  Receive Date: 20140515
  Receipt Date: 20140521
  Transmission Date: 20141212
  Serious: No
  Sender: FDA-Public Use
  Company Number: US-009507513-1405USA000503

PATIENT
  Age: 82 Year
  Sex: Female

DRUGS (2)
  1. OXYTROL FOR WOMEN [Suspect]
     Indication: MICTURITION DISORDER
     Dosage: UNK, Q4D
     Route: 062
     Dates: start: 201401, end: 201404
  2. OXYTROL FOR WOMEN [Suspect]
     Dosage: UNK, Q4D
     Route: 062
     Dates: start: 201401, end: 201404

REACTIONS (3)
  - Application site irritation [Recovered/Resolved]
  - Product adhesion issue [Unknown]
  - Product quality issue [Unknown]
